FAERS Safety Report 13242451 (Version 2)
Quarter: 2017Q1

REPORT INFORMATION
  Report Type: Spontaneous
  Country: JP (occurrence: JP)
  Receive Date: 20170217
  Receipt Date: 20170315
  Transmission Date: 20170428
  Serious: Yes (Other)
  Sender: FDA-Public Use
  Company Number: JP-EDENBRIDGE PHARMACEUTICALS, LLC-JP-2017EDE000001

PATIENT

DRUGS (1)
  1. PREDNISOLONE SODIUM PHOSPHATE. [Suspect]
     Active Substance: PREDNISOLONE SODIUM PHOSPHATE
     Indication: ASTHMA
     Dosage: 5 MG, QD
     Route: 048

REACTIONS (3)
  - Hypokalaemia [Recovered/Resolved]
  - Ventricular arrhythmia [Recovered/Resolved]
  - Ventricular fibrillation [Recovered/Resolved]
